FAERS Safety Report 9300767 (Version 1)
Quarter: 2013Q2

REPORT INFORMATION
  Report Type: Spontaneous
  Country: US (occurrence: None)
  Receive Date: 20130520
  Receipt Date: 20130520
  Transmission Date: 20140414
  Serious: No
  Sender: FDA-Public Use
  Company Number: None

PATIENT
  Age: 44 Year
  Sex: Female
  Weight: 79.38 kg

DRUGS (1)
  1. LAMOTRIGINE [Suspect]
     Dosage: 100 MG 2X PO/DAYY
     Dates: start: 20110918, end: 20130214

REACTIONS (1)
  - Suicidal ideation [None]
